FAERS Safety Report 14456076 (Version 1)
Quarter: 2018Q1

REPORT INFORMATION
  Report Type: Spontaneous
  Country: DE (occurrence: DE)
  Receive Date: 20180130
  Receipt Date: 20180130
  Transmission Date: 20180509
  Serious: Yes (Hospitalization)
  Sender: FDA-Public Use
  Company Number: DE-CIPLA LTD.-2018DE01828

PATIENT

DRUGS (3)
  1. CYCLOPHOSPHAMIDE. [Suspect]
     Active Substance: CYCLOPHOSPHAMIDE
     Indication: BREAST CANCER
     Dosage: 500 MG/M2, UNK
     Route: 042
     Dates: start: 20171206, end: 20171206
  2. EPIRUBICIN [Suspect]
     Active Substance: EPIRUBICIN
     Indication: BREAST CANCER
     Dosage: 60 MG/M2, UNK
     Route: 042
     Dates: start: 20171206, end: 20171206
  3. TAXOTERE [Suspect]
     Active Substance: DOCETAXEL
     Indication: BREAST CANCER
     Dosage: 60 MG/M2, UNK
     Route: 042
     Dates: start: 20171206, end: 20171206

REACTIONS (5)
  - Diarrhoea [Recovering/Resolving]
  - Nausea [Recovering/Resolving]
  - Leukopenia [Recovering/Resolving]
  - Abdominal pain upper [Recovering/Resolving]
  - General physical health deterioration [Recovering/Resolving]

NARRATIVE: CASE EVENT DATE: 20171207
